FAERS Safety Report 4351038-4 (Version None)
Quarter: 2004Q2

REPORT INFORMATION
  Report Type: 
  Country: None (occurrence: None)
  Receive Date: 20040428
  Receipt Date: 20040419
  Transmission Date: 20050107
  Serious: Yes (Death, Other)
  Sender: FDA-Public Use
  Company Number: US_0404102198

PATIENT
  Age: 31 Year
  Sex: Male
  Weight: 69 kg

DRUGS (9)
  1. XIGRIS [Suspect]
     Indication: SEPSIS
     Dosage: 124 UG/KG/HR
     Dates: start: 20040203, end: 20040206
  2. CISATRACURIUM [Concomitant]
  3. VASOPRESSIN INJECTION [Concomitant]
  4. NOREPINEPHRINE [Concomitant]
  5. LASIX [Concomitant]
  6. DEXAMETHASONE [Concomitant]
  7. ATIVAN [Concomitant]
  8. LEVOFLOXACIN [Concomitant]
  9. PROTONIX [Concomitant]

REACTIONS (28)
  - ACTIVATED PARTIAL THROMBOPLASTIN TIME PROLONGED [None]
  - ACTIVATED PARTIAL THROMBOPLASTIN TIME SHORTENED [None]
  - ACUTE RESPIRATORY DISTRESS SYNDROME [None]
  - ASCITES [None]
  - BRADYCARDIA [None]
  - CARDIAC ARREST [None]
  - COLITIS [None]
  - COMPUTERISED TOMOGRAM ABNORMAL [None]
  - CONDITION AGGRAVATED [None]
  - CONTUSION [None]
  - HAEMATOCRIT DECREASED [None]
  - HAEMODIALYSIS [None]
  - HAEMOGLOBIN DECREASED [None]
  - HEPATIC INFARCTION [None]
  - HYPERPROTEINAEMIA [None]
  - HYPOTENSION [None]
  - INCISION SITE HAEMORRHAGE [None]
  - INTERNATIONAL NORMALISED RATIO DECREASED [None]
  - LUNG CONSOLIDATION [None]
  - PLATELET COUNT DECREASED [None]
  - PNEUMOMEDIASTINUM [None]
  - PNEUMONIA [None]
  - PNEUMOTHORAX [None]
  - POST PROCEDURAL HAEMORRHAGE [None]
  - RENAL FAILURE [None]
  - SPLEEN DISORDER [None]
  - SPLENOMEGALY [None]
  - SUBCUTANEOUS EMPHYSEMA [None]
